FAERS Safety Report 4703186-4 (Version None)
Quarter: 2005Q2

REPORT INFORMATION
  Report Type: 
  Country: None (occurrence: None)
  Receive Date: 20050629
  Receipt Date: 20050622
  Transmission Date: 20051028
  Serious: Yes (Life-Threatening)
  Sender: FDA-Public Use
  Company Number: 2005AP03438

PATIENT
  Age: 59 Year
  Sex: Male

DRUGS (4)
  1. XYLOCAINE [Suspect]
     Indication: CYSTOSCOPY
     Route: 061
  2. XYLOCAINE [Suspect]
     Indication: LOCAL ANAESTHESIA
     Route: 061
  3. PHTHARAL [Suspect]
     Indication: STERILISATION
     Route: 061
  4. ISODINE [Concomitant]
     Indication: STERILISATION
     Route: 061

REACTIONS (5)
  - ANAPHYLACTIC REACTION [None]
  - ANAPHYLACTIC SHOCK [None]
  - ELECTROCARDIOGRAM ST SEGMENT ELEVATION [None]
  - FALL [None]
  - SHOCK [None]
